FAERS Safety Report 9379062 (Version 2)
Quarter: 2013Q3

REPORT INFORMATION
  Report Type: Report from Study
  Country: BR (occurrence: BR)
  Receive Date: 20130702
  Receipt Date: 20130705
  Transmission Date: 20140515
  Serious: Yes (Death, Hospitalization)
  Sender: FDA-Public Use
  Company Number: BR-ABBOTT-13P-020-1112650-00

PATIENT
  Age: 66 Year
  Sex: Female

DRUGS (6)
  1. HUMIRA [Suspect]
     Indication: RHEUMATOID ARTHRITIS
     Route: 058
  2. COMBINED FORMULA [Suspect]
     Indication: RHEUMATIC DISORDER
  3. PURAN T4 [Concomitant]
     Indication: THYROID DISORDER
  4. UNSPECIFIED DRUG [Concomitant]
     Indication: OSTEOPOROSIS
  5. AAS [Concomitant]
     Indication: PRODUCT USED FOR UNKNOWN INDICATION
  6. SIMVASTATIN [Concomitant]
     Indication: PRODUCT USED FOR UNKNOWN INDICATION

REACTIONS (3)
  - Acute myocardial infarction [Fatal]
  - Coronary artery insufficiency [Fatal]
  - Malaise [Unknown]
